FAERS Safety Report 13855117 (Version 1)
Quarter: 2017Q3

REPORT INFORMATION
  Report Type: Spontaneous
  Country: GB (occurrence: GB)
  Receive Date: 20170810
  Receipt Date: 20170810
  Transmission Date: 20171127
  Serious: Yes (Hospitalization)
  Sender: FDA-Public Use
  Company Number: GB-AMGEN-GBRSP2017118497

PATIENT
  Age: 76 Year
  Sex: Female
  Weight: 60.32 kg

DRUGS (11)
  1. ADCAL D3 [Concomitant]
     Active Substance: CALCIUM CARBONATE\CHOLECALCIFEROL
  2. E45 ITCH RELIEF [Concomitant]
  3. LANSOPRAZOLE. [Concomitant]
     Active Substance: LANSOPRAZOLE
  4. DIHYDROCODEINE [Concomitant]
     Active Substance: DIHYDROCODEINE
  5. IBUPROFEN. [Concomitant]
     Active Substance: IBUPROFEN
  6. FUROSEMIDE. [Concomitant]
     Active Substance: FUROSEMIDE
  7. LETROZOLE. [Concomitant]
     Active Substance: LETROZOLE
  8. XGEVA [Suspect]
     Active Substance: DENOSUMAB
     Indication: BREAST CANCER METASTATIC
     Dosage: 120 MG, UNK
     Route: 058
     Dates: start: 20170614, end: 20170720
  9. DOCUSATE [Concomitant]
     Active Substance: DOCUSATE
  10. OXYCODONE HYDROCHLORIDE. [Concomitant]
     Active Substance: OXYCODONE HYDROCHLORIDE
  11. ZOPICLONE [Concomitant]
     Active Substance: ZOPICLONE

REACTIONS (8)
  - Musculoskeletal stiffness [Unknown]
  - C-reactive protein increased [Unknown]
  - Diarrhoea [Recovered/Resolved]
  - Hypomagnesaemia [Unknown]
  - Arthralgia [Unknown]
  - Arthritis [Unknown]
  - Hypocalcaemia [Recovering/Resolving]
  - Constipation [Unknown]

NARRATIVE: CASE EVENT DATE: 20170614
